FAERS Safety Report 6504031-7 (Version None)
Quarter: 2009Q4

REPORT INFORMATION
  Report Type: 
  Country: None (occurrence: None)
  Receive Date: 20091215
  Receipt Date: 20091201
  Transmission Date: 20100525
  Serious: Yes (Other)
  Sender: FDA-Public Use
  Company Number: 2009-0342

PATIENT
  Age: 57 Year
  Sex: Male

DRUGS (7)
  1. SOMATULINE DEPOT [Suspect]
     Indication: METASTASES TO LIVER
     Dosage: (90 MG, 1 IN 4 WK) SUBCUTANEOUS
     Route: 058
     Dates: start: 20080328
  2. SOMATULINE DEPOT [Suspect]
     Indication: NEUROENDOCRINE TUMOUR
     Dosage: (90 MG, 1 IN 4 WK) SUBCUTANEOUS
     Route: 058
     Dates: start: 20080328
  3. SOMATULINE DEPOT [Suspect]
     Indication: METASTASES TO LIVER
     Dosage: (120 MG, 1 IN 1 M) SUBCUTANEOUS
     Route: 058
     Dates: start: 20090316
  4. SOMATULINE DEPOT [Suspect]
     Indication: NEUROENDOCRINE TUMOUR
     Dosage: (120 MG, 1 IN 1 M) SUBCUTANEOUS
     Route: 058
     Dates: start: 20090316
  5. TAHOR 10 (ATORVASTATIN CALCIUM) [Concomitant]
  6. PANTOPRAZOLE SODIUM [Concomitant]
  7. ZOPLICONE (ZOPICLONE) [Concomitant]

REACTIONS (4)
  - CHOLESTASIS [None]
  - MALIGNANT NEOPLASM PROGRESSION [None]
  - PRURITUS [None]
  - TUMOUR MARKER INCREASED [None]
